FAERS Safety Report 5451637-2 (Version None)
Quarter: 2007Q3

REPORT INFORMATION
  Report Type: 
  Country: None (occurrence: None)
  Receive Date: 20070913
  Receipt Date: 20070906
  Transmission Date: 20080115
  Serious: Yes (Hospitalization)
  Sender: FDA-Public Use
  Company Number: US-BOEHRINGER INGELHEIM PHARMACEUTICALS, INC.-2007-BP-19421BP

PATIENT
  Age: 58 Year
  Sex: Female

DRUGS (7)
  1. AGGRENOX [Suspect]
     Indication: CEREBROVASCULAR ACCIDENT PROPHYLAXIS
  2. PROZAC [Concomitant]
  3. NEURONTIN [Concomitant]
  4. SINGULAIR [Concomitant]
  5. LIPITOR [Concomitant]
     Route: 048
  6. DIOVAN [Concomitant]
  7. ASPIRIN [Concomitant]

REACTIONS (3)
  - CEREBRAL INFARCTION [None]
  - CEREBROVASCULAR ACCIDENT [None]
  - TRANSIENT ISCHAEMIC ATTACK [None]
